FAERS Safety Report 8430920 (Version 3)
Quarter: 2013Q2

REPORT INFORMATION
  Report Type: Report from Study
  Country: BR (occurrence: BR)
  Receive Date: 20120228
  Receipt Date: 20130521
  Transmission Date: 20140414
  Serious: Yes (Hospitalization)
  Sender: FDA-Public Use
  Company Number: PHHO2010BR18156

PATIENT
  Age: 41 Year
  Sex: Female
  Weight: 56 kg

DRUGS (8)
  1. AFINITOR [Suspect]
     Indication: BREAST CANCER METASTATIC
     Dosage: CODE NOT BROKEN
     Route: 048
     Dates: start: 20100914, end: 20101122
  2. AFINITOR [Suspect]
     Dosage: CODE NOT BROKEN
     Route: 048
     Dates: start: 20101214
  3. COMPARATOR TRASTUZUMAB [Suspect]
     Indication: BREAST CANCER METASTATIC
     Dosage: 2 MG/KG
     Route: 042
     Dates: start: 20100914, end: 20101116
  4. COMPARATOR TRASTUZUMAB [Suspect]
     Dosage: 2 MG/KG
     Route: 042
     Dates: start: 20101207
  5. COMPARATOR PACLITAXEL [Suspect]
     Indication: BREAST CANCER METASTATIC
     Dosage: 80 MG/M2
     Route: 042
     Dates: start: 20100914, end: 20101116
  6. COMPARATOR PACLITAXEL [Suspect]
     Dosage: 80 MG/M2
     Route: 042
     Dates: start: 20101214
  7. SIMVASTATIN [Concomitant]
     Indication: HYPERCHOLESTEROLAEMIA
  8. OMEPRAZOLE [Concomitant]
     Indication: ABDOMINAL PAIN UPPER

REACTIONS (6)
  - Pneumonia [Recovered/Resolved]
  - Pyrexia [Recovered/Resolved]
  - Dyspnoea [Recovered/Resolved]
  - Lymphangitis [Recovered/Resolved]
  - Device related infection [Recovered/Resolved]
  - Staphylococcal infection [Recovered/Resolved]
